FAERS Safety Report 8206896-X (Version None)
Quarter: 2012Q1

REPORT INFORMATION
  Report Type: 
  Country: None (occurrence: None)
  Receive Date: 20120314
  Receipt Date: 20120306
  Transmission Date: 20120608
  Serious: Yes (Hospitalization, Other)
  Sender: FDA-Public Use
  Company Number: US-TEVA-326737USA

PATIENT
  Sex: Female

DRUGS (1)
  1. COPAXONE [Suspect]
     Indication: MULTIPLE SCLEROSIS
     Route: 058
     Dates: start: 20090924

REACTIONS (4)
  - COLITIS [None]
  - DEMYELINATION [None]
  - MULTIPLE SCLEROSIS RELAPSE [None]
  - GASTROINTESTINAL HAEMORRHAGE [None]
